FAERS Safety Report 7753457-2 (Version None)
Quarter: 2011Q3

REPORT INFORMATION
  Report Type: 
  Country: None (occurrence: None)
  Receive Date: 20110915
  Receipt Date: 20110902
  Transmission Date: 20111222
  Serious: Yes (Other)
  Sender: FDA-Public Use
  Company Number: US-ELI_LILLY_AND_COMPANY-US201108003207

PATIENT
  Sex: Female

DRUGS (3)
  1. VICODIN [Concomitant]
  2. FORTEO [Suspect]
     Indication: OSTEOPOROSIS
     Dosage: 20 UG, QD
     Dates: start: 20110516
  3. ACETAMINOPHEN [Concomitant]

REACTIONS (10)
  - MULTIPLE ALLERGIES [None]
  - PAIN [None]
  - ABDOMINAL DISCOMFORT [None]
  - INSOMNIA [None]
  - PAIN IN EXTREMITY [None]
  - ARTHRALGIA [None]
  - GASTROOESOPHAGEAL REFLUX DISEASE [None]
  - ILIUM FRACTURE [None]
  - MUSCULOSKELETAL STIFFNESS [None]
  - SINUS DISORDER [None]
